FAERS Safety Report 14941070 (Version 1)
Quarter: 2018Q2

REPORT INFORMATION
  Report Type: Spontaneous
  Country: DE (occurrence: DE)
  Receive Date: 20180525
  Receipt Date: 20180525
  Transmission Date: 20180711
  Serious: Yes (Hospitalization, Other)
  Sender: FDA-Public Use
  Company Number: DE-PFIZER INC-2018210041

PATIENT
  Age: 20 Year
  Sex: Male

DRUGS (5)
  1. TIAPRIDE [Concomitant]
     Active Substance: TIAPRIDE
     Indication: DYSKINESIA
     Dosage: UNK
  2. PREGABALIN. [Suspect]
     Active Substance: PREGABALIN
     Indication: PARTIAL SEIZURES
     Dosage: 150 MG, 1X/DAY
  3. PREGABALIN. [Suspect]
     Active Substance: PREGABALIN
     Indication: DYSKINESIA
  4. IBUPROFEN. [Concomitant]
     Active Substance: IBUPROFEN
     Dosage: UNK
  5. ACETYLSALICYLIC ACID [Concomitant]
     Active Substance: ASPIRIN
     Dosage: UNK

REACTIONS (6)
  - Depression [Recovered/Resolved]
  - Sleep disorder [Recovered/Resolved]
  - Anxiety [Recovered/Resolved]
  - Suicide attempt [Recovered/Resolved]
  - Apathy [Recovered/Resolved]
  - Suicidal ideation [Recovered/Resolved]
